FAERS Safety Report 7060599-6 (Version None)
Quarter: 2010Q4

REPORT INFORMATION
  Report Type: 
  Country: None (occurrence: None)
  Receive Date: 20101025
  Receipt Date: 20101012
  Transmission Date: 20110411
  Serious: Yes (Other)
  Sender: FDA-Public Use
  Company Number: US-CELGENEUS-028-50794-10101477

PATIENT

DRUGS (2)
  1. VIDAZA [Suspect]
     Route: 058
  2. CYCLOSPORINE [Concomitant]
     Indication: LIVER TRANSPLANT
     Route: 065

REACTIONS (1)
  - TRANSAMINASES INCREASED [None]
